FAERS Safety Report 23250529 (Version 1)
Quarter: 2023Q4

REPORT INFORMATION
  Report Type: Spontaneous
  Country: US (occurrence: None)
  Receive Date: 20231130
  Receipt Date: 20231130
  Transmission Date: 20240110
  Serious: No
  Sender: FDA-Public Use
  Company Number: None

PATIENT
  Age: 79 Year
  Sex: Female
  Weight: 73.8 kg

DRUGS (1)
  1. LEQVIO [Suspect]
     Active Substance: INCLISIRAN SODIUM
     Indication: Hyperlipidaemia
     Dosage: OTHER FREQUENCY : ONCE;?
     Route: 058
     Dates: start: 20230824

REACTIONS (1)
  - Influenza like illness [None]

NARRATIVE: CASE EVENT DATE: 20230824
